FAERS Safety Report 7999795-X (Version None)
Quarter: 2011Q4

REPORT INFORMATION
  Report Type: 
  Country: None (occurrence: None)
  Receive Date: 20111222
  Receipt Date: 20111214
  Transmission Date: 20120403
  Serious: Yes (Other)
  Sender: FDA-Public Use
  Company Number: US-BIOGENIDEC-2009BI010467

PATIENT
  Age: 22 Year
  Sex: Female
  Weight: 92 kg

DRUGS (3)
  1. AVONEX [Suspect]
     Route: 030
     Dates: end: 20110215
  2. AVONEX [Suspect]
     Indication: MULTIPLE SCLEROSIS
     Route: 030
     Dates: start: 20071001, end: 20080731
  3. AVONEX [Suspect]
     Route: 030
     Dates: start: 20090101, end: 20090228

REACTIONS (1)
  - STILLBIRTH [None]
